FAERS Safety Report 20104707 (Version 1)
Quarter: 2021Q4

REPORT INFORMATION
  Report Type: Spontaneous
  Country: US (occurrence: US)
  Receive Date: 20211123
  Receipt Date: 20211123
  Transmission Date: 20220304
  Serious: No
  Sender: FDA-Public Use
  Company Number: US-BANNER LIFE SCIENCES, LLC-2021BAN000066

PATIENT

DRUGS (4)
  1. BAFIERTAM [Suspect]
     Active Substance: MONOMETHYL FUMARATE
     Indication: Multiple sclerosis
     Dosage: 95 MG, BID
     Route: 048
     Dates: start: 20210728, end: 202108
  2. BAFIERTAM [Suspect]
     Active Substance: MONOMETHYL FUMARATE
     Dosage: 190 MG, BID
     Route: 048
     Dates: start: 202108, end: 202108
  3. BAFIERTAM [Suspect]
     Active Substance: MONOMETHYL FUMARATE
     Dosage: 95 MG, BID
     Route: 048
     Dates: start: 202108, end: 20210811
  4. SPIRONOLACTONE [Concomitant]
     Active Substance: SPIRONOLACTONE
     Indication: Blood pressure abnormal
     Dosage: UNK

REACTIONS (5)
  - Vitreous floaters [Recovered/Resolved]
  - Blepharospasm [Recovered/Resolved]
  - Vision blurred [Recovered/Resolved]
  - Abdominal pain upper [Recovered/Resolved]
  - Visual impairment [Recovered/Resolved]

NARRATIVE: CASE EVENT DATE: 20210101
